FAERS Safety Report 22058630 (Version 1)
Quarter: 2023Q1

REPORT INFORMATION
  Report Type: Spontaneous
  Country: DE (occurrence: None)
  Receive Date: 20230303
  Receipt Date: 20230303
  Transmission Date: 20230418
  Serious: Yes (Other)
  Sender: FDA-Public Use
  Company Number: 2023A046266

PATIENT
  Age: 42 Year
  Sex: Female
  Weight: 109 kg

DRUGS (1)
  1. TEZSPIRE [Suspect]
     Active Substance: TEZEPELUMAB-EKKO
     Indication: Status asthmaticus
     Dosage: 210.0MG UNKNOWN
     Dates: start: 202212, end: 202301

REACTIONS (2)
  - Vasculitis [Not Recovered/Not Resolved]
  - Rash [Not Recovered/Not Resolved]
